FAERS Safety Report 8847439 (Version 2)
Quarter: 2013Q1

REPORT INFORMATION
  Report Type: Spontaneous
  Country: FR (occurrence: FR)
  Receive Date: 20121018
  Receipt Date: 20130201
  Transmission Date: 20140127
  Serious: Yes (Other)
  Sender: FDA-Public Use
  Company Number: FR-CELGENEUS-056-50794-12100955

PATIENT
  Sex: Male

DRUGS (4)
  1. VIDAZA [Suspect]
     Indication: MYELODYSPLASTIC SYNDROME
     Route: 058
     Dates: start: 2012
  2. VIDAZA [Suspect]
     Route: 065
     Dates: start: 20121219, end: 20121227
  3. VIDAZA [Suspect]
     Route: 065
     Dates: start: 20130114
  4. ZOPHREN [Concomitant]
     Indication: ANTIEMETIC SUPPORTIVE CARE
     Route: 065

REACTIONS (1)
  - Drug eruption [Unknown]
